FAERS Safety Report 13507256 (Version 1)
Quarter: 2017Q2

REPORT INFORMATION
  Report Type: Spontaneous
  Country: US (occurrence: US)
  Receive Date: 20170503
  Receipt Date: 20170503
  Transmission Date: 20170830
  Serious: No
  Sender: FDA-Public Use
  Company Number: US-TEVA-727443ACC

PATIENT
  Age: 39 Year
  Sex: Female
  Weight: 60.84 kg

DRUGS (1)
  1. MICONAZOLE 2% [Suspect]
     Active Substance: MICONAZOLE
     Indication: FUNGAL INFECTION
     Dates: start: 20161022

REACTIONS (1)
  - Vulvovaginal discomfort [Not Recovered/Not Resolved]

NARRATIVE: CASE EVENT DATE: 20161024
